FAERS Safety Report 21883396 (Version 1)
Quarter: 2023Q1

REPORT INFORMATION
  Report Type: Report from Study
  Country: US (occurrence: US)
  Receive Date: 20230119
  Receipt Date: 20230119
  Transmission Date: 20230418
  Serious: No
  Sender: FDA-Public Use
  Company Number: US-ABBVIE-4245437

PATIENT
  Sex: Female

DRUGS (2)
  1. HUMIRA [Suspect]
     Active Substance: ADALIMUMAB
     Indication: Psoriatic arthropathy
     Dosage: CITRATE FREE
     Route: 058
  2. PREDNISONE [Suspect]
     Active Substance: PREDNISONE
     Indication: Drug hypersensitivity
     Route: 065

REACTIONS (7)
  - Somnolence [Unknown]
  - Pain [Recovering/Resolving]
  - Nausea [Unknown]
  - Muscle spasms [Unknown]
  - Hypoaesthesia [Unknown]
  - Arthralgia [Recovering/Resolving]
  - Irritability [Unknown]
